FAERS Safety Report 10200824 (Version 1)
Quarter: 2014Q2

REPORT INFORMATION
  Report Type: Spontaneous
  Country: JP (occurrence: JP)
  Receive Date: 20140528
  Receipt Date: 20140528
  Transmission Date: 20141212
  Serious: Yes (Other)
  Sender: FDA-Public Use
  Company Number: JP-BAYER-2014-077230

PATIENT
  Sex: 0

DRUGS (2)
  1. ADALAT CR [Suspect]
     Route: 048
  2. BAYASPIRIN [Suspect]
     Route: 048

REACTIONS (1)
  - Gastric ulcer [None]
